FAERS Safety Report 9664275 (Version 2)
Quarter: 2019Q3

REPORT INFORMATION
  Report Type: Report from Study
  Country: US (occurrence: US)
  Receive Date: 20131101
  Receipt Date: 20190916
  Transmission Date: 20191005
  Serious: Yes (Death, Hospitalization)
  Sender: FDA-Public Use
  Company Number: US-SA-2013SA111875

PATIENT
  Age: 54 Year
  Sex: Male

DRUGS (2)
  1. IMIGLUCERASE [Suspect]
     Active Substance: IMIGLUCERASE
     Dosage: 1600 (UNITS NOT PROVIDED); FREQUENCY: Q2
     Route: 042
     Dates: start: 20131101, end: 20190726
  2. IMIGLUCERASE [Suspect]
     Active Substance: IMIGLUCERASE
     Indication: GAUCHER^S DISEASE
     Dosage: 1600 U, QOW
     Route: 042
     Dates: start: 2005

REACTIONS (2)
  - Road traffic accident [Fatal]
  - Chest pain [Unknown]

NARRATIVE: CASE EVENT DATE: 20131027
